FAERS Safety Report 10012706 (Version 3)
Quarter: 2014Q2

REPORT INFORMATION
  Report Type: Spontaneous
  Country: US (occurrence: US)
  Receive Date: 20140314
  Receipt Date: 20140407
  Transmission Date: 20141212
  Serious: No
  Sender: FDA-Public Use
  Company Number: US-009507513-1403USA006585

PATIENT
  Age: 66 Year
  Sex: Male
  Weight: 73.47 kg

DRUGS (3)
  1. DULERA [Suspect]
     Indication: CHRONIC OBSTRUCTIVE PULMONARY DISEASE
     Dosage: 200/5 MCG, 2 DF, BID
     Route: 055
     Dates: start: 2013
  2. LISINOPRIL [Concomitant]
  3. VENTOLIN (ALBUTEROL SULFATE) [Concomitant]

REACTIONS (2)
  - Drug dose omission [Unknown]
  - Product quality issue [Unknown]
